FAERS Safety Report 7311937-8 (Version None)
Quarter: 2011Q1

REPORT INFORMATION
  Report Type: 
  Country: None (occurrence: None)
  Receive Date: 20110224
  Receipt Date: 20110214
  Transmission Date: 20110831
  Serious: Yes (Hospitalization)
  Sender: FDA-Public Use
  Company Number: PHHY2011BR12833

PATIENT
  Sex: Female

DRUGS (5)
  1. GLIMEPIRIDE [Concomitant]
     Indication: DIABETES MELLITUS
     Dosage: 1 DF, DAILY
     Route: 048
     Dates: start: 20040101
  2. DIOVAN HCT [Suspect]
     Indication: HYPERTENSION
     Dosage: VALSARTAN 160MG AND HYDROCHLOROTIAZIDE 12.5MG (ONE TABLET DAILY)
     Route: 048
  3. VASOGARD [Concomitant]
     Indication: POOR PERIPHERAL CIRCULATION
     Dosage: 2 DF, DAILY
     Route: 048
     Dates: start: 20100101
  4. GLUCOFORMIN [Concomitant]
     Indication: DIABETES MELLITUS
     Dosage: 850 MG, TID (3 TABLETS DAILY)
     Route: 048
     Dates: start: 20040101
  5. PURAN T4 [Concomitant]
     Indication: HYPERTHYROIDISM
     Dosage: ONE TABLET DAILY
     Route: 048
     Dates: start: 20040101

REACTIONS (1)
  - SKIN ULCER [None]
